FAERS Safety Report 9028194 (Version 1)
Quarter: 2013Q1

REPORT INFORMATION
  Report Type: Spontaneous
  Country: US (occurrence: None)
  Receive Date: 20130115
  Receipt Date: 20130115
  Transmission Date: 20140127
  Serious: No
  Sender: FDA-Public Use
  Company Number: None

PATIENT
  Age: 7 Year
  Sex: Male
  Weight: 27.67 kg

DRUGS (1)
  1. VYVANCE [Suspect]
     Indication: ATTENTION DEFICIT/HYPERACTIVITY DISORDER
     Dosage: 10 MG AS PER DOCTORORDER 1 TIME PO
     Route: 048
     Dates: start: 20130113, end: 20130113

REACTIONS (1)
  - Tic [None]
